FAERS Safety Report 21396846 (Version 1)
Quarter: 2022Q3

REPORT INFORMATION
  Report Type: Spontaneous
  Country: JP (occurrence: JP)
  Receive Date: 20220930
  Receipt Date: 20220930
  Transmission Date: 20221027
  Serious: Yes (Other)
  Sender: FDA-Public Use
  Company Number: JP-PFIZER INC-PV202200067265

PATIENT
  Age: 20 Year
  Sex: Female

DRUGS (14)
  1. DOXORUBICIN HYDROCHLORIDE [Suspect]
     Active Substance: DOXORUBICIN HYDROCHLORIDE
     Indication: B-cell type acute leukaemia
     Dosage: CVAD (HYPERFRACTIONATED)
  2. METHOTREXATE SODIUM [Suspect]
     Active Substance: METHOTREXATE SODIUM
     Indication: B-cell type acute leukaemia
     Dosage: HIGH-DOSE, TRIPLE INTRATHECAL THERAPY
  3. METHOTREXATE SODIUM [Suspect]
     Active Substance: METHOTREXATE SODIUM
     Dosage: 20 MG/M2, WEEKLY (POMP THERAPY AS MAINTENANCE THERAPY)
  4. METHOTREXATE SODIUM [Suspect]
     Active Substance: METHOTREXATE SODIUM
     Dosage: 100 MG/M2(CONVENTIONAL CHEMOTHERAPY)
  5. RITUXIMAB [Suspect]
     Active Substance: RITUXIMAB
     Indication: B-cell type acute leukaemia
     Dosage: COMBINATION THERAPY WITH HYPER-CVAD
  6. RITUXIMAB [Suspect]
     Active Substance: RITUXIMAB
     Dosage: COMBINATION THERAPY WITH HD-MA
  7. RITUXIMAB [Suspect]
     Active Substance: RITUXIMAB
     Dosage: COMBINATION THERAPY WITH HYPER-CVAD AND CONVENTIONAL CHEMOTHERAPY
  8. CYCLOPHOSPHAMIDE [Suspect]
     Active Substance: CYCLOPHOSPHAMIDE
     Indication: B-cell type acute leukaemia
     Dosage: CVAD (HYPERFRACTIONATED)
  9. VINCRISTINE [Suspect]
     Active Substance: VINCRISTINE
     Indication: B-cell type acute leukaemia
     Dosage: CVAD (HYPERFRACTIONATED)
  10. VINCRISTINE [Suspect]
     Active Substance: VINCRISTINE
     Dosage: 2 MG (POMP THERAPY AS MAINTENANCE THERAPY)
  11. DEXAMETHASONE [Suspect]
     Active Substance: DEXAMETHASONE
     Indication: B-cell type acute leukaemia
     Dosage: CVAD (HYPERFRACTIONATED)
  12. CYTARABINE [Suspect]
     Active Substance: CYTARABINE
     Indication: B-cell type acute leukaemia
     Dosage: COMBINATION THERAPY WITH HD-MA
  13. PREDNISOLONE [Suspect]
     Active Substance: PREDNISOLONE
     Indication: B-cell type acute leukaemia
     Dosage: 60 MG/M2, 1X/DAY(POMP THERAPY AS MAINTENANCE THERAPY)
  14. MERCAPTOPURINE [Suspect]
     Active Substance: MERCAPTOPURINE
     Indication: B-cell type acute leukaemia
     Dosage: 50 MG (POMP THERAPY AS MAINTENANCE THERAPY)

REACTIONS (2)
  - Pancytopenia [Unknown]
  - Reproductive toxicity [Unknown]
